FAERS Safety Report 23570117 (Version 1)
Quarter: 2024Q1

REPORT INFORMATION
  Report Type: Spontaneous
  Country: CA (occurrence: None)
  Receive Date: 20240227
  Receipt Date: 20240227
  Transmission Date: 20240409
  Serious: Yes (Death, Other)
  Sender: FDA-Public Use
  Company Number: CA-PFIZER INC-202400048746

PATIENT
  Sex: Female

DRUGS (1)
  1. METHOTREXATE [Suspect]
     Active Substance: METHOTREXATE
     Indication: Product used for unknown indication

REACTIONS (1)
  - Nephrolithiasis [Fatal]
